FAERS Safety Report 18717730 (Version 1)
Quarter: 2021Q1

REPORT INFORMATION
  Report Type: Spontaneous
  Country: US (occurrence: US)
  Receive Date: 20210108
  Receipt Date: 20210108
  Transmission Date: 20210419
  Serious: Yes (Hospitalization)
  Sender: FDA-Public Use
  Company Number: NVSC2021US002905

PATIENT
  Age: 31 Year
  Sex: Male

DRUGS (3)
  1. ACETAMINOPHEN (PARACETAMOL) [Suspect]
     Active Substance: ACETAMINOPHEN
     Indication: ABDOMINAL PAIN
     Dosage: 500 MG(EVERY 4?5 HOURS)
     Route: 065
  2. N?ACETYLCYSTEINE [Suspect]
     Active Substance: ACETYLCYSTEINE
     Indication: HEPATORENAL FAILURE
  3. N?ACETYLCYSTEINE [Suspect]
     Active Substance: ACETYLCYSTEINE
     Indication: TOXICITY TO VARIOUS AGENTS
     Dosage: UNK(FROM HOSPITAL DAY 0?8)
     Route: 065

REACTIONS (2)
  - Hepatorenal failure [Recovering/Resolving]
  - Toxicity to various agents [Recovering/Resolving]
